FAERS Safety Report 10785141 (Version 1)
Quarter: 2015Q1

REPORT INFORMATION
  Report Type: Spontaneous
  Country: GB (occurrence: None)
  Receive Date: 20150209
  Receipt Date: 20150209
  Transmission Date: 20150721
  Serious: No
  Sender: FDA-Public Use
  Company Number: GB-LHC-2015013

PATIENT
  Age: 52 Year
  Sex: Female

DRUGS (1)
  1. CARBON DIOXIDE. [Suspect]
     Active Substance: CARBON DIOXIDE
     Indication: COLON OPERATION
     Dosage: INSUFFLATION

REACTIONS (8)
  - Subcutaneous emphysema [None]
  - Dysphonia [None]
  - Pneumoperitoneum [None]
  - Post procedural complication [None]
  - Tachycardia [None]
  - Cellulitis [None]
  - Pneumomediastinum [None]
  - C-reactive protein increased [None]
